FAERS Safety Report 6266695-5 (Version None)
Quarter: 2009Q3

REPORT INFORMATION
  Report Type: 
  Country: None (occurrence: None)
  Receive Date: 20090714
  Receipt Date: 20070910
  Transmission Date: 20100115
  Serious: Yes (Other)
  Sender: FDA-Public Use
  Company Number: US-ASTRAZENECA-2007UW16436

PATIENT
  Age: 13139 Day
  Sex: Female
  Weight: 89.8 kg

DRUGS (40)
  1. SEROQUEL [Suspect]
     Indication: HALLUCINATION, AUDITORY
     Dosage: 100 - 300 MG
     Route: 048
     Dates: start: 20021025
  2. SEROQUEL [Suspect]
     Indication: SLEEP DISORDER
     Dosage: 100 - 300 MG
     Route: 048
     Dates: start: 20021025
  3. SEROQUEL [Suspect]
     Indication: ANXIETY
     Dosage: 100 - 300 MG
     Route: 048
     Dates: start: 20021025
  4. SEROQUEL [Suspect]
     Route: 048
  5. SEROQUEL [Suspect]
     Route: 048
  6. SEROQUEL [Suspect]
     Route: 048
  7. ZYPREXA [Concomitant]
     Dates: start: 19990101
  8. RISPERDAL [Concomitant]
  9. ZOLPIDEM [Concomitant]
  10. PARACETAMOL [Concomitant]
  11. LOTENSIN [Concomitant]
  12. ZOLOFT [Concomitant]
  13. LORAZEPAM [Concomitant]
  14. PRANDIN [Concomitant]
  15. DULOXETINE HYDROCHLORIDE [Concomitant]
  16. ERYTHROMYCIN [Concomitant]
  17. RESTORIL [Concomitant]
  18. HALOPERIDOL [Concomitant]
  19. INSULIN ASPART [Concomitant]
  20. PHYTONADIONE [Concomitant]
  21. LEVAQUIN [Concomitant]
  22. SEVOFLURANE [Concomitant]
  23. METOCLOPRAMIDE [Concomitant]
  24. KETOROLAC TROMETHAMINE [Concomitant]
  25. PROPOFOL [Concomitant]
  26. VICODIN [Concomitant]
  27. STARLIX [Concomitant]
  28. GLUCOPHAGE [Concomitant]
  29. NABUMETONE [Concomitant]
  30. VOLTAREN [Concomitant]
  31. ALBUTEROL [Concomitant]
  32. DESYREL [Concomitant]
  33. PHENERGAN [Concomitant]
  34. SINEQUAN [Concomitant]
  35. LEXAPRO [Concomitant]
  36. TRIAMCINOLONE [Concomitant]
  37. KEFLEX [Concomitant]
  38. EFFEXOR [Concomitant]
  39. ZANTAC [Concomitant]
  40. DICYCLOMINE [Concomitant]

REACTIONS (4)
  - COLLAPSE OF LUNG [None]
  - DIABETES MELLITUS [None]
  - DRUG EXPOSURE DURING PREGNANCY [None]
  - HYPERGLYCAEMIA [None]
